FAERS Safety Report 9056251 (Version 2)
Quarter: 2013Q3

REPORT INFORMATION
  Report Type: Spontaneous
  Country: FR (occurrence: FR)
  Receive Date: 20130205
  Receipt Date: 20130904
  Transmission Date: 20140515
  Serious: Yes (Hospitalization)
  Sender: FDA-Public Use
  Company Number: FR-PFIZER INC-2013037627

PATIENT
  Age: 53 Year
  Sex: Female

DRUGS (5)
  1. ENBREL [Suspect]
     Indication: ANKYLOSING SPONDYLITIS
     Dosage: UNK
     Dates: start: 201006, end: 201010
  2. SALAZOPYRINE [Suspect]
     Indication: ANKYLOSING SPONDYLITIS
     Dosage: UNK
     Dates: start: 200804, end: 201102
  3. SALAZOPYRINE [Suspect]
     Dosage: UNK
     Dates: start: 201102, end: 201204
  4. CIMZIA [Suspect]
     Indication: ANKYLOSING SPONDYLITIS
     Dosage: UNK
     Dates: start: 20101104, end: 201102
  5. CIMZIA [Suspect]
     Dosage: UNK
     Dates: start: 201102, end: 20120502

REACTIONS (3)
  - Lung disorder [Not Recovered/Not Resolved]
  - Nodule [Not Recovered/Not Resolved]
  - Sarcoidosis [Not Recovered/Not Resolved]
